FAERS Safety Report 4453066-7 (Version None)
Quarter: 2004Q3

REPORT INFORMATION
  Report Type: 
  Country: None (occurrence: None)
  Receive Date: 20040813
  Receipt Date: 20040504
  Transmission Date: 20050211
  Serious: No
  Sender: FDA-Public Use
  Company Number: S04-USA-03282-01

PATIENT
  Age: 83 Year
  Sex: Female

DRUGS (9)
  1. NAMENDA [Suspect]
     Indication: DEMENTIA ALZHEIMER'S TYPE
     Dosage: 5 MG QD PO
     Route: 048
     Dates: start: 20040407, end: 20040413
  2. NAMENDA [Suspect]
     Indication: DEMENTIA ALZHEIMER'S TYPE
     Dosage: 10 MG QD PO
     Route: 048
     Dates: start: 20040414, end: 20040420
  3. NAMENDA [Suspect]
     Indication: DEMENTIA ALZHEIMER'S TYPE
     Dosage: 15 MG QD PO
     Route: 048
     Dates: start: 20040421, end: 20040427
  4. NAMENDA [Suspect]
     Indication: DEMENTIA ALZHEIMER'S TYPE
     Dosage: 10 MG BID PO
     Route: 048
     Dates: start: 20040428
  5. ARICEPT [Concomitant]
  6. ZOLOFT [Concomitant]
  7. RISPERDAL [Concomitant]
  8. DIOVAN [Concomitant]
  9. A THYROID MEDICATION (NOS) [Concomitant]

REACTIONS (3)
  - CONFUSIONAL STATE [None]
  - CRYING [None]
  - MEMORY IMPAIRMENT [None]
